FAERS Safety Report 23530081 (Version 1)
Quarter: 2024Q1

REPORT INFORMATION
  Report Type: Spontaneous
  Country: JP (occurrence: JP)
  Receive Date: 20240216
  Receipt Date: 20240216
  Transmission Date: 20240410
  Serious: Yes (Life-Threatening, Hospitalization, Other)
  Sender: FDA-Public Use
  Company Number: JP-HEXAL-SDZ2023JP044662AA

PATIENT
  Age: 38 Year
  Sex: Female

DRUGS (11)
  1. BIPERIDEN HYDROCHLORIDE [Suspect]
     Active Substance: BIPERIDEN HYDROCHLORIDE
     Indication: Suicidal ideation
     Dosage: 14 MG
     Route: 048
  2. LAMOTRIGINE [Suspect]
     Active Substance: LAMOTRIGINE
     Dosage: 2800 MG
     Route: 048
  3. LAMOTRIGINE [Suspect]
     Active Substance: LAMOTRIGINE
     Indication: Suicidal ideation
     Dosage: UNK
     Route: 048
  4. METFORMIN HYDROCHLORIDE [Suspect]
     Active Substance: METFORMIN HYDROCHLORIDE
     Dosage: 27.5 G
     Route: 048
  5. METFORMIN HYDROCHLORIDE [Suspect]
     Active Substance: METFORMIN HYDROCHLORIDE
     Indication: Suicidal ideation
     Dosage: UNK
     Route: 048
  6. ROSUVASTATIN [Suspect]
     Active Substance: ROSUVASTATIN
     Dosage: 60 MG
     Route: 048
  7. ROSUVASTATIN [Suspect]
     Active Substance: ROSUVASTATIN
     Indication: Suicidal ideation
     Dosage: UNK
     Route: 048
  8. SERTRALINE HYDROCHLORIDE [Suspect]
     Active Substance: SERTRALINE HYDROCHLORIDE
     Dosage: 700 MG
     Route: 048
  9. SERTRALINE HYDROCHLORIDE [Suspect]
     Active Substance: SERTRALINE HYDROCHLORIDE
     Indication: Suicidal ideation
     Dosage: UNK
     Route: 048
  10. VOGLIBOSE [Suspect]
     Active Substance: VOGLIBOSE
     Dosage: 25.5 MG
     Route: 048
  11. VOGLIBOSE [Suspect]
     Active Substance: VOGLIBOSE
     Indication: Suicidal ideation
     Dosage: UNK
     Route: 048

REACTIONS (3)
  - Suicide attempt [Unknown]
  - Altered state of consciousness [Recovered/Resolved]
  - Overdose [Unknown]
